FAERS Safety Report 20920786 (Version 1)
Quarter: 2022Q2

REPORT INFORMATION
  Report Type: Spontaneous
  Country: CA (occurrence: None)
  Receive Date: 20220606
  Receipt Date: 20220606
  Transmission Date: 20220721
  Serious: Yes (Other)
  Sender: FDA-Public Use
  Company Number: CA-ROCHE-3104210

PATIENT
  Age: 62 Year
  Sex: Female

DRUGS (5)
  1. TRASTUZUMAB [Suspect]
     Active Substance: TRASTUZUMAB
     Indication: Adenocarcinoma
     Route: 041
  2. ZOLEDRONIC ACID [Concomitant]
     Active Substance: ZOLEDRONIC ACID
     Route: 042
  3. PERTUZUMAB [Concomitant]
     Active Substance: PERTUZUMAB
     Route: 042
  4. PACLITAXEL [Concomitant]
     Active Substance: PACLITAXEL
     Route: 042
  5. LETROZOLE [Concomitant]
     Active Substance: LETROZOLE
     Route: 048

REACTIONS (3)
  - Therapy partial responder [Unknown]
  - Neuropathy peripheral [Unknown]
  - Off label use [Unknown]
